FAERS Safety Report 12336632 (Version 1)
Quarter: 2016Q2

REPORT INFORMATION
  Report Type: Spontaneous
  Country: US (occurrence: US)
  Receive Date: 20160505
  Receipt Date: 20160505
  Transmission Date: 20160815
  Serious: Yes (Other)
  Sender: FDA-Public Use
  Company Number: US-STRIDES ARCOLAB LIMITED-2016SP001507

PATIENT

DRUGS (1)
  1. TACROLIMUS. [Suspect]
     Active Substance: TACROLIMUS
     Indication: IMMUNOSUPPRESSION
     Dosage: UNK,
     Route: 065

REACTIONS (6)
  - Glomerulosclerosis [Unknown]
  - Nephropathy toxic [Unknown]
  - Arteriosclerosis [Unknown]
  - Toxicity to various agents [Unknown]
  - Renal tubular atrophy [Unknown]
  - Kidney fibrosis [Unknown]
